FAERS Safety Report 23136478 (Version 1)
Quarter: 2023Q4

REPORT INFORMATION
  Report Type: Spontaneous
  Country: GB (occurrence: GB)
  Receive Date: 20231102
  Receipt Date: 20231102
  Transmission Date: 20240110
  Serious: Yes (Disabling)
  Sender: FDA-Public Use
  Company Number: None

PATIENT
  Age: 65 Year
  Sex: Male

DRUGS (2)
  1. BISOPROLOL [Suspect]
     Active Substance: BISOPROLOL\BISOPROLOL FUMARATE
     Indication: Angina pectoris
     Dosage: 5 MILLIGRAM DAILY; 5MG OD
     Route: 065
     Dates: start: 20230502, end: 20230621
  2. ATORVASTATIN [Concomitant]
     Active Substance: ATORVASTATIN
     Indication: Angina pectoris
     Dates: start: 20230502

REACTIONS (1)
  - Personality change [Recovered/Resolved]
